FAERS Safety Report 9657036 (Version 2)
Quarter: 2014Q1

REPORT INFORMATION
  Report Type: Spontaneous
  Country: US (occurrence: US)
  Receive Date: 20131030
  Receipt Date: 20140129
  Transmission Date: 20141002
  Serious: No
  Sender: FDA-Public Use
  Company Number: US-009507513-1310USA014219

PATIENT
  Age: 89 Year
  Sex: Female
  Weight: 53.52 kg

DRUGS (7)
  1. CLARITIN [Suspect]
     Indication: RHINORRHOEA
     Dosage: 10 MG, QD
     Route: 048
     Dates: start: 20131003, end: 20131022
  2. CLARITIN [Suspect]
     Indication: NASAL DISCOMFORT
  3. SIMVASTATIN [Concomitant]
     Indication: BLOOD CHOLESTEROL
     Dosage: 20 MG, UNKNOWN
  4. CENTRUM SILVER [Concomitant]
     Indication: VITAMIN SUPPLEMENTATION
     Dosage: UNK, UNKNOWN
  5. OMEGA-3 MARINE TRIGLYCERIDES [Concomitant]
     Indication: ROUTINE HEALTH MAINTENANCE
     Dosage: UNK, UNKNOWN
  6. CHOLECALCIFEROL [Concomitant]
     Indication: OSTEOPOROSIS PROPHYLAXIS
     Dosage: UNK, UNKNOWN
  7. FAMOTIDINE [Concomitant]
     Indication: GASTROOESOPHAGEAL REFLUX DISEASE
     Dosage: UNK, UNKNOWN

REACTIONS (1)
  - Drug ineffective [Unknown]
